FAERS Safety Report 6232358-5 (Version None)
Quarter: 2009Q2

REPORT INFORMATION
  Report Type: 
  Country: None (occurrence: None)
  Receive Date: 20090617
  Receipt Date: 20090612
  Transmission Date: 20091009
  Serious: Yes (Other)
  Sender: FDA-Public Use
  Company Number: US-JNJFOC-20090605125

PATIENT
  Sex: Female
  Weight: 47.63 kg

DRUGS (1)
  1. LEVAQUIN [Suspect]
     Indication: INFLAMMATION
     Route: 048

REACTIONS (3)
  - ACTIVITIES OF DAILY LIVING IMPAIRED [None]
  - MYALGIA [None]
  - RASH GENERALISED [None]
